FAERS Safety Report 5882283-4 (Version None)
Quarter: 2008Q3

REPORT INFORMATION
  Report Type: 
  Country: None (occurrence: None)
  Receive Date: 20080912
  Receipt Date: 20080729
  Transmission Date: 20090109
  Serious: No
  Sender: FDA-Public Use
  Company Number: US-ABBOTT-08P-163-0467077-00

PATIENT
  Sex: Female
  Weight: 79.904 kg

DRUGS (4)
  1. HUMIRA [Suspect]
     Indication: RHEUMATOID ARTHRITIS
     Route: 058
     Dates: start: 20080619
  2. METHOTREXATE [Concomitant]
     Indication: RHEUMATOID ARTHRITIS
     Dosage: 20 MG WEEKLY
     Route: 048
     Dates: start: 20070614
  3. TRAMADOL HCL [Concomitant]
     Indication: PAIN
     Route: 048
     Dates: start: 20080201
  4. FOLIC ACID [Concomitant]
     Indication: VITAMIN SUPPLEMENTATION
     Dosage: 1 MG DAILY
     Route: 048
     Dates: start: 20080201

REACTIONS (4)
  - BREAST TENDERNESS [None]
  - LYMPHADENOPATHY [None]
  - PARAESTHESIA [None]
  - PRURITUS GENERALISED [None]
